FAERS Safety Report 5229892-3 (Version None)
Quarter: 2007Q1

REPORT INFORMATION
  Report Type: 
  Country: None (occurrence: None)
  Receive Date: 20070206
  Receipt Date: 20061212
  Transmission Date: 20070707
  Serious: No
  Sender: FDA-Public Use
  Company Number: US-GLAXOSMITHKLINE-A0628668A

PATIENT
  Age: 70 Year
  Sex: Female

DRUGS (3)
  1. PAXIL [Suspect]
     Route: 048
     Dates: start: 19980101
  2. ADVAIR DISKUS 100/50 [Suspect]
     Indication: BRONCHIECTASIS
     Route: 055
     Dates: start: 20060430
  3. NO CONCURRENT MEDICATION [Concomitant]

REACTIONS (5)
  - DIZZINESS [None]
  - DIZZINESS POSTURAL [None]
  - FALL [None]
  - HEAD INJURY [None]
  - VERTIGO [None]
